FAERS Safety Report 8411038-1 (Version None)
Quarter: 2012Q2

REPORT INFORMATION
  Report Type: 
  Country: None (occurrence: None)
  Receive Date: 20120605
  Receipt Date: 20120502
  Transmission Date: 20120825
  Serious: No
  Sender: FDA-Public Use
  Company Number: US-AMGEN-USASP2012027823

PATIENT
  Age: 45 Year
  Sex: Male

DRUGS (2)
  1. ENBREL [Suspect]
     Indication: RHEUMATOID ARTHRITIS
     Dosage: 50 MG, QWK
     Dates: start: 20030912, end: 20120422
  2. ENBREL [Suspect]
     Indication: ANKYLOSING SPONDYLITIS

REACTIONS (7)
  - PYREXIA [None]
  - SNEEZING [None]
  - OROPHARYNGEAL PAIN [None]
  - CHILLS [None]
  - PAIN [None]
  - NASAL CONGESTION [None]
  - RESPIRATORY TRACT CONGESTION [None]
